FAERS Safety Report 17872158 (Version 2)
Quarter: 2023Q4

REPORT INFORMATION
  Report Type: Report from Study
  Country: AU (occurrence: AU)
  Receive Date: 20200608
  Receipt Date: 20231006
  Transmission Date: 20240110
  Serious: Yes (Other)
  Sender: FDA-Public Use
  Company Number: AU-NOVARTISPH-NVSC2020AU156947

PATIENT
  Age: 21 Month
  Sex: Female
  Weight: 9.8 kg

DRUGS (4)
  1. ZOLGENSMA [Suspect]
     Active Substance: ONASEMNOGENE ABEPARVOVEC-XIOI
     Indication: Spinal muscular atrophy
     Dosage: 55.0 ML ONCE/SINGLE
     Route: 042
     Dates: start: 20200526
  2. PREDNISOLONE [Concomitant]
     Active Substance: PREDNISOLONE
     Indication: Product used for unknown indication
     Dosage: 10 MG, QD
     Route: 065
     Dates: start: 20200525, end: 20200602
  3. PREDNISOLONE [Concomitant]
     Active Substance: PREDNISOLONE
     Dosage: 10 MG, BID
     Route: 065
     Dates: start: 20200602
  4. LOSEC [Concomitant]
     Active Substance: OMEPRAZOLE
     Indication: Product used for unknown indication
     Dosage: 10 MG, QD
     Route: 065
     Dates: start: 20200525, end: 20200602

REACTIONS (9)
  - Thrombocytopenia [Not Recovered/Not Resolved]
  - Hypertransaminasaemia [Not Recovered/Not Resolved]
  - Activated partial thromboplastin time shortened [Unknown]
  - Blood creatinine decreased [Unknown]
  - Blood creatine phosphokinase increased [Unknown]
  - Troponin T increased [Unknown]
  - Platelet count decreased [Unknown]
  - Aspartate aminotransferase increased [Unknown]
  - Alanine aminotransferase increased [Unknown]

NARRATIVE: CASE EVENT DATE: 20200602
